FAERS Safety Report 10667442 (Version 1)
Quarter: 2014Q4

REPORT INFORMATION
  Report Type: Spontaneous
  Country: NZ (occurrence: None)
  Receive Date: 20141218
  Receipt Date: 20141218
  Transmission Date: 20150529
  Serious: Yes (Death)
  Sender: FDA-Public Use
  Company Number: NZ-DEXPHARM-20141054

PATIENT
  Age: 58 Year
  Sex: Male

DRUGS (1)
  1. DICLOFENAC [Suspect]
     Active Substance: DICLOFENAC
     Indication: PANCREATITIS
     Dosage: DOSAGE TEXT: 75 MG*10 OVER 4 DAYS, IMTRAMUSCULAR
     Route: 030

REACTIONS (4)
  - Necrotising fasciitis [None]
  - Respiratory failure [None]
  - Sepsis [None]
  - Renal failure [None]
